FAERS Safety Report 9091289 (Version 3)
Quarter: 2016Q1

REPORT INFORMATION
  Report Type: Spontaneous
  Country: IT (occurrence: IT)
  Receive Date: 20130201
  Receipt Date: 20160205
  Transmission Date: 20160526
  Serious: Yes (Death, Other)
  Sender: FDA-Public Use
  Company Number: IT-BRISTOL-MYERS SQUIBB COMPANY-17314907

PATIENT
  Age: 81 Year
  Sex: Male

DRUGS (13)
  1. OMNIC [Concomitant]
     Active Substance: TAMSULOSIN HYDROCHLORIDE
     Indication: PRODUCT USED FOR UNKNOWN INDICATION
     Dosage: CAPS
     Route: 065
  2. COUMADIN [Suspect]
     Active Substance: WARFARIN SODIUM
     Indication: CEREBROVASCULAR ACCIDENT
     Dosage: 1 DF, PRN
     Route: 048
     Dates: start: 20110101, end: 20121227
  3. NITRODERM [Concomitant]
     Active Substance: NITROGLYCERIN
     Indication: PRODUCT USED FOR UNKNOWN INDICATION
     Dosage: 5 MG, QD
     Route: 065
  4. DELTACORTENE [Concomitant]
     Active Substance: PREDNISONE
     Indication: PRODUCT USED FOR UNKNOWN INDICATION
     Dosage: CAPS
     Route: 065
  5. DILATREND [Concomitant]
     Active Substance: CARVEDILOL
     Indication: PRODUCT USED FOR UNKNOWN INDICATION
     Dosage: 6.25MG 1/2 CAPS*2
     Route: 065
  6. CRESTOR [Concomitant]
     Active Substance: ROSUVASTATIN CALCIUM
     Indication: PRODUCT USED FOR UNKNOWN INDICATION
     Dosage: 1 CAPS
     Route: 065
  7. TICLOPIDINE HCL [Suspect]
     Active Substance: TICLOPIDINE HYDROCHLORIDE
     Indication: CEREBROVASCULAR ACCIDENT
     Dosage: 250 MG, QD
     Route: 048
     Dates: start: 20110101, end: 20121227
  8. REMERON [Concomitant]
     Active Substance: MIRTAZAPINE
     Indication: PRODUCT USED FOR UNKNOWN INDICATION
     Dosage: 1 CAPS
     Route: 065
  9. SPIRIVA [Concomitant]
     Active Substance: TIOTROPIUM BROMIDE MONOHYDRATE
     Indication: PRODUCT USED FOR UNKNOWN INDICATION
     Dosage: 1 CAPS
     Route: 065
  10. CARDURA [Concomitant]
     Active Substance: DOXAZOSIN MESYLATE
     Indication: PRODUCT USED FOR UNKNOWN INDICATION
     Dosage: 2MG 1CAPS*2
     Route: 065
  11. LASIX [Concomitant]
     Active Substance: FUROSEMIDE
     Indication: PRODUCT USED FOR UNKNOWN INDICATION
     Dosage: 25MG 1 CAPS
     Route: 065
  12. ANTRA [Concomitant]
     Active Substance: OMEPRAZOLE
     Indication: PRODUCT USED FOR UNKNOWN INDICATION
     Dosage: 1 CAPS
     Route: 065
  13. ROFLUMILAST [Concomitant]
     Active Substance: ROFLUMILAST
     Indication: PRODUCT USED FOR UNKNOWN INDICATION
     Dosage: 1 CAPS
     Route: 065

REACTIONS (4)
  - Off label use [Unknown]
  - Ischaemic stroke [Fatal]
  - Aortic aneurysm rupture [Fatal]
  - Shock haemorrhagic [Fatal]

NARRATIVE: CASE EVENT DATE: 20121227
